FAERS Safety Report 20458704 (Version 4)
Quarter: 2022Q1

REPORT INFORMATION
  Report Type: Report from Study
  Country: IT (occurrence: IT)
  Receive Date: 20220211
  Receipt Date: 20220304
  Transmission Date: 20220423
  Serious: Yes (Congenital Anomaly)
  Sender: FDA-Public Use
  Company Number: IT-PFIZER INC-202200174756

PATIENT
  Sex: Female
  Weight: 2.3 kg

DRUGS (12)
  1. AVIBACTAM SODIUM\CEFTAZIDIME [Suspect]
     Active Substance: AVIBACTAM SODIUM\CEFTAZIDIME
     Indication: Sepsis
     Dosage: [AVIBACTAM SODIUM 10.5MG]/[CEFTAZIDIME PENTAHYDRATE 42MG], 3X/DAY
     Route: 042
     Dates: start: 20220122, end: 20220128
  2. CAPTOPRIL [Concomitant]
     Active Substance: CAPTOPRIL
     Indication: Hypertrophic cardiomyopathy
     Dosage: 0.06 MG, 2X/DAY
     Route: 048
     Dates: start: 20220126, end: 20220128
  3. CAPTOPRIL [Concomitant]
     Active Substance: CAPTOPRIL
     Dosage: 1 MG, 2X/DAY
     Route: 048
     Dates: start: 20220124, end: 20220126
  4. GENTAMICIN [Concomitant]
     Active Substance: GENTAMICIN
     Indication: Sepsis
     Dosage: 10 MG, SINGLE
     Route: 042
     Dates: start: 20220121, end: 20220127
  5. PROPRANOLOL [Concomitant]
     Active Substance: PROPRANOLOL HYDROCHLORIDE
     Indication: Hypertrophic cardiomyopathy
     Dosage: 1.2 MG, 3X/DAY
     Route: 048
     Dates: start: 20220120
  6. AMPICILLIN [Concomitant]
     Active Substance: AMPICILLIN
     Indication: Sepsis
     Dosage: UNK UNK, 3X/DAY
     Route: 042
     Dates: start: 20220121, end: 20220122
  7. METRONIDAZOLE [Concomitant]
     Active Substance: METRONIDAZOLE
     Indication: Sepsis
     Dosage: 10 MG, 1X/DAY
     Route: 042
     Dates: start: 20220122, end: 20220128
  8. METRONIDAZOLE [Concomitant]
     Active Substance: METRONIDAZOLE
     Indication: Necrotising colitis
     Dosage: 30 MG, 1X/DAY
     Route: 042
     Dates: start: 20220121, end: 20220121
  9. URSODIOL [Concomitant]
     Active Substance: URSODIOL
     Indication: Cholestasis
     Dosage: 20 MG, 3X/DAY
     Route: 048
     Dates: start: 20220119
  10. ALBUMIN HUMAN [Concomitant]
     Active Substance: ALBUMIN HUMAN
     Indication: Hypoalbuminaemia
     Dosage: 15 ML, CONTINUOUS INFUSION
     Dates: start: 20220127, end: 20220128
  11. ALBUMIN HUMAN [Concomitant]
     Active Substance: ALBUMIN HUMAN
     Dosage: 10 ML, CONTINUOUS INFUSION
     Route: 042
     Dates: start: 20220121, end: 20220121
  12. OMEPRAZOLE [Concomitant]
     Active Substance: OMEPRAZOLE
     Indication: Prophylaxis
     Dosage: 2 MG, SINGLE
     Route: 042
     Dates: start: 20220123, end: 20220201

REACTIONS (2)
  - Renal failure [Not Recovered/Not Resolved]
  - Gene mutation [Not Recovered/Not Resolved]
